FAERS Safety Report 6790719-X (Version None)
Quarter: 2010Q2

REPORT INFORMATION
  Report Type: 
  Country: None (occurrence: None)
  Receive Date: 20100624
  Receipt Date: 20100621
  Transmission Date: 20101027
  Serious: Yes (Death)
  Sender: FDA-Public Use
  Company Number: LB-ELI_LILLY_AND_COMPANY-LB201006001922

PATIENT
  Sex: Male
  Weight: 56 kg

DRUGS (5)
  1. PEMETREXED [Suspect]
     Indication: NON-SMALL CELL LUNG CANCER
     Dosage: 500 MG/M2, UNK
     Route: 042
     Dates: start: 20080226
  2. CISPLATIN [Suspect]
     Indication: NON-SMALL CELL LUNG CANCER
     Dosage: 75 MG/M2, UNK
     Route: 042
     Dates: start: 20080226
  3. FOLIC ACID [Concomitant]
     Dosage: 2500 UG, UNK
     Route: 048
     Dates: start: 20080219
  4. VITAMIN B-12 [Concomitant]
     Dosage: 1000 UG, UNK
     Route: 030
     Dates: start: 20080219
  5. DEXAMETHASONE ACETATE [Concomitant]
     Dosage: 4 MG, 2/D
     Dates: start: 20080225

REACTIONS (1)
  - SUDDEN DEATH [None]
